FAERS Safety Report 8460672 (Version 3)
Quarter: 2012Q4

REPORT INFORMATION
  Report Type: Spontaneous
  Country: DE (occurrence: None)
  Receive Date: 20120222
  Receipt Date: 20121114
  Transmission Date: 20130627
  Serious: Yes (Death, Hospitalization)
  Sender: FDA-Public Use
  Company Number: 2012031148

PATIENT
  Age: 79 Year
  Sex: Male

DRUGS (11)
  1. PRIVIGEN [Suspect]
     Indication: CHRONIC LYMPHOCYTIC LEUKAEMIA
     Dosage: 10 G QD INTRAVENOUS (NOT OTHERWISE SPECIFIED)
     Route: 042
     Dates: start: 20101021, end: 20101021
  2. PRIVIGEN [Suspect]
     Indication: CHRONIC LYMPHOCYTIC LEUKAEMIA
     Route: 042
     Dates: start: 20101021, end: 20101021
  3. PRIVIGEN [Suspect]
     Indication: CHRONIC LYMPHOCYTIC LEUKAEMIA
     Route: 042
     Dates: start: 20101021, end: 20101021
  4. PRIVIGEN [Suspect]
     Indication: CHRONIC LYMPHOCYTIC LEUKAEMIA
     Route: 042
     Dates: start: 20110214, end: 20110214
  5. PRIVIGEN [Suspect]
     Indication: CHRONIC LYMPHOCYTIC LEUKAEMIA
     Route: 042
     Dates: start: 20110214, end: 20110214
  6. AMLODIPIN /00972401/ (AMLODIPINE) [Concomitant]
  7. ALLOPURINOL [Concomitant]
  8. RAMIPRIL [Concomitant]
  9. PREDNISOLON /00016201/ (PREDNISOLONE) [Concomitant]
  10. PANTOPRAZOLE [Concomitant]
  11. BISOPROLOL FUMARATE [Concomitant]

REACTIONS (6)
  - Lung infection [None]
  - Sepsis [None]
  - Chills [None]
  - Blood pressure decreased [None]
  - Blood pressure increased [None]
  - Infusion related reaction [None]
